FAERS Safety Report 12086473 (Version 1)
Quarter: 2016Q1

REPORT INFORMATION
  Report Type: Spontaneous
  Country: US (occurrence: US)
  Receive Date: 20160217
  Receipt Date: 20160217
  Transmission Date: 20160526
  Serious: No
  Sender: FDA-Public Use
  Company Number: US-ALLERGAN-1500810US

PATIENT
  Age: 73 Year
  Sex: Male

DRUGS (2)
  1. RESTASIS [Suspect]
     Active Substance: CYCLOSPORINE
     Dosage: 2 GTT, QAM
     Route: 047
     Dates: start: 2010
  2. RESTASIS [Suspect]
     Active Substance: CYCLOSPORINE
     Indication: EYE DISORDER
     Dosage: 2 GTT, QAM
     Route: 047
     Dates: start: 201412

REACTIONS (3)
  - Dry eye [Unknown]
  - Inappropriate schedule of drug administration [Unknown]
  - Off label use [Unknown]
